FAERS Safety Report 5339190-5 (Version None)
Quarter: 2007Q2

REPORT INFORMATION
  Report Type: 
  Country: None (occurrence: None)
  Receive Date: 20070530
  Receipt Date: 20070521
  Transmission Date: 20071010
  Serious: Yes (Other)
  Sender: FDA-Public Use
  Company Number: CN-PFIZER INC-2007041523

PATIENT
  Age: 71 Year
  Sex: Female

DRUGS (5)
  1. GLIPIZIDE [Suspect]
     Indication: DIABETES MELLITUS
     Route: 048
  2. NORVASC [Concomitant]
     Route: 048
  3. COZAAR [Concomitant]
     Route: 048
  4. BETALOC [Concomitant]
     Route: 048
  5. TINIDAZOLE [Concomitant]
     Route: 048
     Dates: start: 20070513, end: 20070516

REACTIONS (6)
  - BLOOD PRESSURE INCREASED [None]
  - DIZZINESS [None]
  - MENIERE'S DISEASE [None]
  - TEETHING [None]
  - VERTIGO [None]
  - VOMITING [None]
